FAERS Safety Report 4800181-1 (Version None)
Quarter: 2005Q4

REPORT INFORMATION
  Report Type: 
  Country: None (occurrence: None)
  Receive Date: 20051017
  Receipt Date: 20051010
  Transmission Date: 20060501
  Serious: Yes (Hospitalization)
  Sender: FDA-Public Use
  Company Number: US-JNJFOC-20051002485

PATIENT
  Sex: Male
  Weight: 61.69 kg

DRUGS (11)
  1. DURAGESIC-100 [Suspect]
     Route: 062
  2. DURAGESIC-100 [Suspect]
     Route: 062
  3. DURAGESIC-100 [Suspect]
     Route: 062
  4. NEURONTIN [Concomitant]
     Route: 048
  5. SOMA [Concomitant]
     Route: 048
  6. LORTAB [Concomitant]
     Route: 048
  7. LORTAB [Concomitant]
     Dosage: 10/650 MG, 4 IN 24 HOURS, AS NECESSARY
     Route: 048
  8. FLEXERIL [Concomitant]
     Dosage: AS NEEDED
     Route: 048
  9. PERCOCET [Concomitant]
     Route: 048
  10. PERCOCET [Concomitant]
     Dosage: 10/650 MG, 4 IN 24 HOURS, AS NECESSARY
     Route: 048
  11. VOLTAREN [Concomitant]
     Route: 048

REACTIONS (1)
  - INTERVERTEBRAL DISC PROTRUSION [None]
